FAERS Safety Report 22298533 (Version 2)
Quarter: 2024Q4

REPORT INFORMATION
  Report Type: Spontaneous
  Country: IN (occurrence: IN)
  Receive Date: 20230509
  Receipt Date: 20241113
  Transmission Date: 20250114
  Serious: Yes (Disabling)
  Sender: PFIZER
  Company Number: IN-PFIZER INC-PV202300081002

PATIENT
  Age: 38 Year
  Sex: Female

DRUGS (1)
  1. PALBOCICLIB [Suspect]
     Active Substance: PALBOCICLIB
     Indication: Breast cancer metastatic
     Dosage: 125 MG
     Route: 048
     Dates: start: 20220110

REACTIONS (1)
  - Disability [Unknown]
